FAERS Safety Report 9336941 (Version 2)
Quarter: 2013Q2

REPORT INFORMATION
  Report Type: Spontaneous
  Country: DE (occurrence: DE)
  Receive Date: 20130607
  Receipt Date: 20130626
  Transmission Date: 20140414
  Serious: Yes (Other)
  Sender: FDA-Public Use
  Company Number: DE-BRISTOL-MYERS SQUIBB COMPANY-18956938

PATIENT
  Age: 87 Year
  Sex: Female
  Weight: 73 kg

DRUGS (6)
  1. ELIQUIS [Suspect]
     Indication: PULMONARY EMBOLISM
     Dates: start: 20130129, end: 20130408
  2. MICARDIS [Concomitant]
     Indication: HYPERTENSION
     Route: 048
  3. METOPROLOL [Concomitant]
     Indication: HYPERTENSION
  4. NOVAMINSULFON [Concomitant]
     Indication: PAIN
     Dosage: 3*20 DROPS
  5. TORASEMIDE [Concomitant]
     Indication: POLYURIA
  6. AMLODIPINE [Concomitant]
     Indication: HYPERTENSION

REACTIONS (3)
  - Haematoma [Recovered/Resolved]
  - Nausea [Recovered/Resolved]
  - Decreased appetite [Recovered/Resolved]
